FAERS Safety Report 5472762-6 (Version None)
Quarter: 2007Q4

REPORT INFORMATION
  Report Type: 
  Country: None (occurrence: None)
  Receive Date: 20071001
  Receipt Date: 20061024
  Transmission Date: 20080405
  Serious: No
  Sender: FDA-Public Use
  Company Number: US-ASTRAZENECA-2006UW20551

PATIENT
  Age: 73 Year
  Sex: Male
  Weight: 71.7 kg

DRUGS (1)
  1. ARIMIDEX [Suspect]
     Indication: BREAST CANCER METASTATIC
     Route: 048
     Dates: start: 20060501

REACTIONS (3)
  - HOT FLUSH [None]
  - PRURITUS [None]
  - SKIN DISORDER [None]
